FAERS Safety Report 23040108 (Version 1)
Quarter: 2023Q4

REPORT INFORMATION
  Report Type: Spontaneous
  Country: JP (occurrence: JP)
  Receive Date: 20231006
  Receipt Date: 20231006
  Transmission Date: 20240110
  Serious: Yes (Other)
  Sender: FDA-Public Use
  Company Number: JP-SA-2023SA246755

PATIENT
  Age: 2 Year
  Sex: Female
  Weight: 10.3 kg

DRUGS (14)
  1. SABRIL [Suspect]
     Active Substance: VIGABATRIN
     Indication: Infantile spasms
     Dosage: 125 MG, BID
     Route: 048
     Dates: start: 20200901, end: 20200914
  2. SABRIL [Suspect]
     Active Substance: VIGABATRIN
     Dosage: 125 MG, QD
     Route: 048
     Dates: start: 20200915, end: 20200928
  3. SABRIL [Suspect]
     Active Substance: VIGABATRIN
     Dosage: 100 MG, QD
     Route: 048
     Dates: start: 20200929, end: 20210201
  4. SABRIL [Suspect]
     Active Substance: VIGABATRIN
     Dosage: 80 MG, QD
     Route: 048
     Dates: start: 20210202, end: 20210221
  5. SABRIL [Suspect]
     Active Substance: VIGABATRIN
     Dosage: 60 MG, QD
     Route: 048
     Dates: start: 20210222, end: 20210405
  6. SABRIL [Suspect]
     Active Substance: VIGABATRIN
     Dosage: 50 MG, QD
     Route: 048
     Dates: start: 20210406, end: 20210505
  7. SABRIL [Suspect]
     Active Substance: VIGABATRIN
     Dosage: 75 MG, QD
     Route: 048
     Dates: start: 20210506, end: 20210628
  8. SABRIL [Suspect]
     Active Substance: VIGABATRIN
     Dosage: 50 MG, BID
     Route: 048
     Dates: start: 20210629, end: 20220118
  9. SABRIL [Suspect]
     Active Substance: VIGABATRIN
     Dosage: 75 MG, BID
     Route: 048
     Dates: start: 20220119, end: 20220613
  10. SABRIL [Suspect]
     Active Substance: VIGABATRIN
     Dosage: 50 MG, BID
     Route: 048
     Dates: start: 20220614, end: 20220731
  11. SABRIL [Suspect]
     Active Substance: VIGABATRIN
     Dosage: 50 MG, QD
     Route: 048
     Dates: start: 20220801, end: 20220815
  12. VALPROATE SODIUM [Concomitant]
     Active Substance: VALPROATE SODIUM
     Indication: Infantile spasms
     Dosage: DAILY DOSE: 200 MG
     Route: 048
  13. LAMOTRIGINE [Concomitant]
     Active Substance: LAMOTRIGINE
     Indication: Infantile spasms
     Dosage: DAILY DOSE: 20 MG
     Route: 048
  14. RAMELTEON [Concomitant]
     Active Substance: RAMELTEON
     Indication: Psychomotor skills impaired
     Dosage: DAILY DOSE: 2 MG
     Route: 048

REACTIONS (3)
  - Retinogram abnormal [Recovering/Resolving]
  - Decreased appetite [Recovering/Resolving]
  - Drug ineffective [Unknown]

NARRATIVE: CASE EVENT DATE: 20200910
